FAERS Safety Report 4984672-9 (Version None)
Quarter: 2006Q2

REPORT INFORMATION
  Report Type: 
  Country: None (occurrence: None)
  Receive Date: 20060427
  Receipt Date: 20051207
  Transmission Date: 20061013
  Serious: Yes (Hospitalization, Other)
  Sender: FDA-Public Use
  Company Number: US-MERCK-0512USA01047

PATIENT
  Age: 70 Year
  Sex: Female
  Weight: 95 kg

DRUGS (3)
  1. VIOXX [Suspect]
     Indication: ARTHRALGIA
     Route: 048
     Dates: start: 20000901, end: 20030701
  2. VIOXX [Suspect]
     Route: 048
     Dates: start: 20000901, end: 20030701
  3. VIOXX [Suspect]
     Route: 048
     Dates: start: 19991101

REACTIONS (30)
  - AMMONIA INCREASED [None]
  - BLOOD PRESSURE SYSTOLIC INCREASED [None]
  - CARDIOMEGALY [None]
  - CEREBRAL INFARCTION [None]
  - CEREBROVASCULAR ACCIDENT [None]
  - CHOLELITHIASIS [None]
  - CONSTIPATION [None]
  - CONVULSION [None]
  - COUGH [None]
  - CUTANEOUS VASCULITIS [None]
  - DEMENTIA [None]
  - DEPRESSION [None]
  - DIABETES MELLITUS NON-INSULIN-DEPENDENT [None]
  - DYSSTASIA [None]
  - EATING DISORDER [None]
  - ELECTROCARDIOGRAM T WAVE INVERSION [None]
  - GRAND MAL CONVULSION [None]
  - HERPES ZOSTER [None]
  - HYPERTENSIVE HEART DISEASE [None]
  - HYPERTROPHY [None]
  - INJECTION SITE IRRITATION [None]
  - MENSTRUATION IRREGULAR [None]
  - NAUSEA [None]
  - OBESITY [None]
  - OESOPHAGEAL STENOSIS [None]
  - OSTEOARTHRITIS [None]
  - PAIN IN EXTREMITY [None]
  - SKIN DISORDER [None]
  - VENOUS THROMBOSIS LIMB [None]
  - VOMITING [None]
